FAERS Safety Report 19452029 (Version 1)
Quarter: 2021Q2

REPORT INFORMATION
  Report Type: Spontaneous
  Country: CA (occurrence: CA)
  Receive Date: 20210623
  Receipt Date: 20210623
  Transmission Date: 20210717
  Serious: Yes (Other)
  Sender: FDA-Public Use
  Company Number: CA-JNJFOC-20210640928

PATIENT
  Age: 32 Year
  Sex: Male

DRUGS (3)
  1. PREDNISONE. [Concomitant]
     Active Substance: PREDNISONE
  2. INFLIXIMAB, RECOMBINANT [Suspect]
     Active Substance: INFLIXIMAB
     Indication: COLITIS ULCERATIVE
     Route: 042
  3. DEXILANT [Concomitant]
     Active Substance: DEXLANSOPRAZOLE

REACTIONS (4)
  - Pruritus [Recovered/Resolved]
  - Condition aggravated [Recovered/Resolved]
  - Weight increased [Recovered/Resolved]
  - Anaphylactic reaction [Recovered/Resolved]
